FAERS Safety Report 12917273 (Version 1)
Quarter: 2016Q4

REPORT INFORMATION
  Report Type: Spontaneous
  Country: MX (occurrence: MX)
  Receive Date: 20161107
  Receipt Date: 20161107
  Transmission Date: 20170207
  Serious: Yes (Death)
  Sender: FDA-Public Use
  Company Number: MX-RARE DISEASE THERAPEUTICS, INC.-1059312

PATIENT
  Age: 24 Month
  Sex: Male

DRUGS (1)
  1. ANASCORP [Suspect]
     Active Substance: SCORPION (CENTRUROIDES) IMMUNE FAB2 ANTIVENIN (EQUINE)
     Indication: ARTHROPOD BITE
     Dates: start: 20160626, end: 20160627

REACTIONS (11)
  - Hypoglycaemia [Not Recovered/Not Resolved]
  - Hypoxia [Not Recovered/Not Resolved]
  - Shock [Not Recovered/Not Resolved]
  - Pulmonary haemorrhage [Not Recovered/Not Resolved]
  - Liver function test abnormal [Not Recovered/Not Resolved]
  - Hypothermia [Not Recovered/Not Resolved]
  - Mydriasis [Not Recovered/Not Resolved]
  - Death [Fatal]
  - Distributive shock [Not Recovered/Not Resolved]
  - Bradycardia [Not Recovered/Not Resolved]
  - Cardiac failure [Fatal]

NARRATIVE: CASE EVENT DATE: 20160627
